FAERS Safety Report 7125240 (Version 2)
Quarter: 2014Q3

REPORT INFORMATION
  Report Type: Spontaneous
  Country: US (occurrence: None)
  Receive Date: 20090910
  Receipt Date: 20140925
  Transmission Date: 20150326
  Serious: Yes (Other)
  Sender: FDA-Public Use
  Company Number: 2009S1006934

PATIENT
  Age: 58 Year
  Sex: Male

DRUGS (3)
  1. LIPITOR [Concomitant]
     Active Substance: ATORVASTATIN CALCIUM
  2. PRINIVIL (LISINOPRIL DIHYDRATE) [Concomitant]
  3. PHOSPHO-SODA [Suspect]
     Active Substance: SODIUM PHOSPHATE, DIBASIC\SODIUM PHOSPHATE, MONOBASIC
     Indication: COLONOSCOPY
     Dosage: 90 ML; TOTAL; PO
     Route: 048
     Dates: start: 20030210, end: 20030211

REACTIONS (11)
  - Dehydration [None]
  - Syncope [None]
  - Blood parathyroid hormone increased [None]
  - Renal tubular necrosis [None]
  - Burning sensation [None]
  - Loss of consciousness [None]
  - Renal failure acute [None]
  - Rhinitis allergic [None]
  - Gout [None]
  - Hyperkalaemia [None]
  - Anaemia [None]

NARRATIVE: CASE EVENT DATE: 200302
